FAERS Safety Report 11604204 (Version 10)
Quarter: 2016Q3

REPORT INFORMATION
  Report Type: Spontaneous
  Country: US (occurrence: US)
  Receive Date: 20151007
  Receipt Date: 20160802
  Transmission Date: 20161109
  Serious: Yes (Hospitalization, Other)
  Sender: FDA-Public Use
  Company Number: US-ROCHE-1642240

PATIENT
  Age: 63 Year
  Sex: Female

DRUGS (14)
  1. CLINDAMYCIN PHOSPHATE. [Concomitant]
     Active Substance: CLINDAMYCIN PHOSPHATE
  2. ALBUTEROL SULFATE. [Concomitant]
     Active Substance: ALBUTEROL SULFATE
  3. ZELBORAF [Suspect]
     Active Substance: VEMURAFENIB
     Indication: MALIGNANT MELANOMA
     Route: 048
     Dates: start: 20150118
  4. ALPRAZOLAM. [Concomitant]
     Active Substance: ALPRAZOLAM
  5. MUPIROCIN CALCIUM. [Concomitant]
     Active Substance: MUPIROCIN CALCIUM
  6. ZELBORAF [Suspect]
     Active Substance: VEMURAFENIB
     Route: 048
     Dates: start: 20150921
  7. ACETAMINOPHEN. [Concomitant]
     Active Substance: ACETAMINOPHEN
  8. ESTROPIPATE. [Concomitant]
     Active Substance: ESTROPIPATE
  9. BETAMETHASONE. [Concomitant]
     Active Substance: BETAMETHASONE
  10. ZELBORAF [Suspect]
     Active Substance: VEMURAFENIB
     Indication: THYROID CANCER
     Route: 048
     Dates: start: 20150921
  11. CLOTRIMAZOLE. [Concomitant]
     Active Substance: CLOTRIMAZOLE
  12. PROZAC [Concomitant]
     Active Substance: FLUOXETINE HYDROCHLORIDE
  13. COLESTIPOL HCL [Concomitant]
     Active Substance: COLESTIPOL HYDROCHLORIDE
  14. GUAIFENESIN. [Concomitant]
     Active Substance: GUAIFENESIN

REACTIONS (17)
  - Measles [Unknown]
  - Dry mouth [Unknown]
  - Pneumonia [Unknown]
  - Pain of skin [Recovered/Resolved]
  - Aphthous ulcer [Unknown]
  - Nausea [Unknown]
  - Skin exfoliation [Unknown]
  - Diarrhoea [Not Recovered/Not Resolved]
  - Dry eye [Unknown]
  - Rash [Recovered/Resolved]
  - Sunburn [Unknown]
  - Eye contusion [Unknown]
  - Off label use [Unknown]
  - Melanocytic naevus [Recovered/Resolved]
  - Heart rate irregular [Unknown]
  - Pneumonitis [Not Recovered/Not Resolved]
  - Cataract [Unknown]

NARRATIVE: CASE EVENT DATE: 20150210
